FAERS Safety Report 16982848 (Version 1)
Quarter: 2019Q4

REPORT INFORMATION
  Report Type: Spontaneous
  Country: CN (occurrence: CN)
  Receive Date: 20191101
  Receipt Date: 20191101
  Transmission Date: 20200122
  Serious: Yes (Other)
  Sender: FDA-Public Use
  Company Number: CN-GLAXOSMITHKLINE-CN2019APC196711

PATIENT

DRUGS (2)
  1. SALBUTAMOL [Suspect]
     Active Substance: ALBUTEROL
     Indication: BRONCHITIS
     Dosage: 2.5 MG, QD
     Route: 055
     Dates: start: 20191022, end: 20191024
  2. PULMICORT TURBUHALER [Concomitant]
     Active Substance: BUDESONIDE
     Indication: BRONCHITIS
     Dosage: UNK

REACTIONS (5)
  - Secretion discharge [Unknown]
  - Breath sounds abnormal [Unknown]
  - Agitation [Unknown]
  - Tonsillar hypertrophy [Unknown]
  - Pharyngeal erythema [Unknown]
